FAERS Safety Report 6521671-X (Version None)
Quarter: 2009Q4

REPORT INFORMATION
  Report Type: 
  Country: None (occurrence: None)
  Receive Date: 20091230
  Receipt Date: 20091221
  Transmission Date: 20100525
  Serious: Yes (Hospitalization)
  Sender: FDA-Public Use
  Company Number: PHHO2009US13743

PATIENT
  Sex: Male
  Weight: 68.934 kg

DRUGS (8)
  1. AFINITOR [Suspect]
     Indication: GLIOBLASTOMA MULTIFORME
     Dosage: 10 MG, QD
     Dates: start: 20090930, end: 20091014
  2. AVASTIN [Suspect]
     Indication: GLIOBLASTOMA MULTIFORME
     Dosage: 753 MG, QD
     Dates: start: 20090720, end: 20090831
  3. AVASTIN [Suspect]
     Dosage: 707 MG, QD
     Dates: start: 20090930, end: 20091014
  4. TEMOZOLOMIDE [Suspect]
     Indication: GLIOBLASTOMA MULTIFORME
     Dosage: 140 MG, QD
     Dates: start: 20090720, end: 20090831
  5. CONTRAST MEDIA [Concomitant]
  6. TRICOR [Concomitant]
  7. KEPPRA [Concomitant]
  8. COLACE [Concomitant]

REACTIONS (18)
  - ARTERIOSCLEROSIS [None]
  - ATELECTASIS [None]
  - CHEST PAIN [None]
  - DEEP VEIN THROMBOSIS [None]
  - HILAR LYMPHADENOPATHY [None]
  - INFLAMMATION [None]
  - LUNG CONSOLIDATION [None]
  - LUNG INFILTRATION [None]
  - LUNG INFILTRATION MALIGNANT [None]
  - LUNG NEOPLASM [None]
  - MUSCULOSKELETAL PAIN [None]
  - PAIN IN EXTREMITY [None]
  - PLEURAL EFFUSION [None]
  - PNEUMONIA [None]
  - PNEUMONITIS [None]
  - PULMONARY EMBOLISM [None]
  - SPINAL OSTEOARTHRITIS [None]
  - VENA CAVA FILTER INSERTION [None]
